APPROVED DRUG PRODUCT: EUTHYROX
Active Ingredient: LEVOTHYROXINE SODIUM
Strength: 0.1MG **See current Annual Edition, 1.8 Description of Special Situations, Levothyroxine Sodium
Dosage Form/Route: TABLET;ORAL
Application: N021292 | Product #005 | TE Code: AB2
Applicant: EMD SERONO INC
Approved: May 31, 2002 | RLD: No | RS: No | Type: RX